FAERS Safety Report 8164654-9 (Version None)
Quarter: 2012Q1

REPORT INFORMATION
  Report Type: 
  Country: None (occurrence: None)
  Receive Date: 20120227
  Receipt Date: 20120215
  Transmission Date: 20120608
  Serious: Yes (Hospitalization)
  Sender: FDA-Public Use
  Company Number: US-BIOGENIDEC-2011BI003251

PATIENT
  Age: 62 Year
  Sex: Female
  Weight: 113 kg

DRUGS (1)
  1. AVONEX [Suspect]
     Indication: MULTIPLE SCLEROSIS
     Route: 030
     Dates: start: 20091021

REACTIONS (5)
  - FALL [None]
  - DIZZINESS [None]
  - HAEMORRHAGE [None]
  - UPPER LIMB FRACTURE [None]
  - BLOOD SODIUM DECREASED [None]
